FAERS Safety Report 4464723-0 (Version None)
Quarter: 2004Q4

REPORT INFORMATION
  Report Type: 
  Country: None (occurrence: None)
  Receive Date: 20041004
  Receipt Date: 20040924
  Transmission Date: 20050328
  Serious: Yes (Other)
  Sender: FDA-Public Use
  Company Number: PHEH2004US10341

PATIENT
  Sex: Female

DRUGS (1)
  1. SERENTIL [Suspect]

REACTIONS (5)
  - DRUG WITHDRAWAL SYNDROME [None]
  - ENCEPHALOPATHY [None]
  - PNEUMONIA [None]
  - PSYCHOMOTOR HYPERACTIVITY [None]
  - SEPSIS [None]
